FAERS Safety Report 8250064-2 (Version None)
Quarter: 2012Q1

REPORT INFORMATION
  Report Type: 
  Country: None (occurrence: None)
  Receive Date: 20120319
  Receipt Date: 20100428
  Transmission Date: 20120608
  Serious: Yes (Other)
  Sender: FDA-Public Use
  Company Number: PHHY2010US27208

PATIENT
  Age: 42 Year
  Sex: Male

DRUGS (1)
  1. TEKTURNA HCT [Suspect]
     Dosage: UNK, ORAL
     Route: 048

REACTIONS (2)
  - RENAL FAILURE ACUTE [None]
  - BLOOD CREATININE INCREASED [None]
